FAERS Safety Report 18016598 (Version 1)
Quarter: 2020Q3

REPORT INFORMATION
  Report Type: Report from Study
  Country: US (occurrence: US)
  Receive Date: 20200713
  Receipt Date: 20200713
  Transmission Date: 20201103
  Serious: Yes (Hospitalization, Other)
  Sender: FDA-Public Use
  Company Number: US-TAKEDA-2020TUS030011

PATIENT
  Sex: Male

DRUGS (3)
  1. VEDOLIZUMAB [Suspect]
     Active Substance: VEDOLIZUMAB
     Indication: LIVER ABSCESS
  2. VEDOLIZUMAB [Suspect]
     Active Substance: VEDOLIZUMAB
     Indication: COLITIS ULCERATIVE
     Dosage: 300 MILLIGRAM
     Route: 042
  3. VEDOLIZUMAB [Suspect]
     Active Substance: VEDOLIZUMAB
     Indication: PANCREATITIS ACUTE

REACTIONS (8)
  - Pancreatitis acute [Unknown]
  - Diarrhoea [Unknown]
  - Off label use [Unknown]
  - Hepatic lesion [Unknown]
  - Liver abscess [Unknown]
  - Abdominal pain [Unknown]
  - Rectal haemorrhage [Unknown]
  - Blood glucose increased [Unknown]
